FAERS Safety Report 18094294 (Version 3)
Quarter: 2021Q1

REPORT INFORMATION
  Report Type: Spontaneous
  Country: CA (occurrence: CA)
  Receive Date: 20200730
  Receipt Date: 20210212
  Transmission Date: 20210419
  Serious: Yes (Life-Threatening, Hospitalization)
  Sender: FDA-Public Use
  Company Number: CA-EMD SERONO-9176670

PATIENT
  Age: 12 Year
  Sex: Female
  Weight: 47 kg

DRUGS (15)
  1. OVIDREL [Suspect]
     Active Substance: CHORIOGONADOTROPIN ALFA
     Indication: IN VITRO FERTILISATION
     Dosage: POWDER FOR SOLUTION INTRAMUSCULAR?1500 UNITS, SINGLE DOSE
     Route: 058
     Dates: start: 20180714, end: 20180714
  2. LUVERIS [Suspect]
     Active Substance: LUTROPIN ALFA
     Dosage: 225 UNITS
     Route: 058
     Dates: start: 20180709, end: 201807
  3. ACETAMINOPHEN. [Concomitant]
     Active Substance: ACETAMINOPHEN
     Indication: PRODUCT USED FOR UNKNOWN INDICATION
  4. CEFAZOLIN [Concomitant]
     Active Substance: CEFAZOLIN
     Indication: PRODUCT USED FOR UNKNOWN INDICATION
  5. DOXYCYCLINE. [Concomitant]
     Active Substance: DOXYCYCLINE
     Indication: PRODUCT USED FOR UNKNOWN INDICATION
  6. CETROTIDE [Suspect]
     Active Substance: CETRORELIX ACETATE
     Indication: IN VITRO FERTILISATION
     Dosage: 0.25 (UNSPECIFIED UNIT)
     Route: 058
     Dates: start: 20180613
  7. GONAL?F [Suspect]
     Active Substance: FOLLITROPIN
     Indication: IN VITRO FERTILISATION
     Dosage: LIQUID INTRAMUSCULAR ?250 UNITS
     Route: 058
     Dates: start: 20180613, end: 201806
  8. LUVERIS [Suspect]
     Active Substance: LUTROPIN ALFA
     Dosage: 225 UNITS
     Route: 058
     Dates: start: 20180712
  9. CODEINE [Concomitant]
     Active Substance: CODEINE
     Indication: PRODUCT USED FOR UNKNOWN INDICATION
  10. DIMENHYDRINATE. [Concomitant]
     Active Substance: DIMENHYDRINATE
     Indication: PRODUCT USED FOR UNKNOWN INDICATION
  11. GONAL?F [Suspect]
     Active Substance: FOLLITROPIN
     Dosage: LIQUID INTRAMUSCULAR?450 UNITS
     Route: 058
     Dates: start: 20180709, end: 201807
  12. GONAL?F [Suspect]
     Active Substance: FOLLITROPIN
     Dosage: LIQUID INTRAMUSCULAR?450 UNITS
     Route: 058
     Dates: start: 20180712
  13. LUVERIS [Suspect]
     Active Substance: LUTROPIN ALFA
     Indication: IN VITRO FERTILISATION
     Dosage: 150 UNITS
     Route: 058
     Dates: start: 20180613, end: 201806
  14. SUPREFACT [Suspect]
     Active Substance: BUSERELIN
     Indication: IN VITRO FERTILISATION
     Dosage: SINGLE DOSE
     Route: 058
     Dates: start: 20180712, end: 20180712
  15. FOLIC ACID. [Concomitant]
     Active Substance: FOLIC ACID
     Indication: PRODUCT USED FOR UNKNOWN INDICATION

REACTIONS (5)
  - Noninfective oophoritis [Unknown]
  - Ovarian enlargement [Unknown]
  - Adnexa uteri pain [Unknown]
  - Ovarian haemorrhage [Unknown]
  - Ovarian hyperstimulation syndrome [Recovered/Resolved]

NARRATIVE: CASE EVENT DATE: 20180718
